FAERS Safety Report 7590332-0 (Version None)
Quarter: 2011Q3

REPORT INFORMATION
  Report Type: 
  Country: None (occurrence: None)
  Receive Date: 20110705
  Receipt Date: 20110627
  Transmission Date: 20111222
  Serious: Yes (Other)
  Sender: FDA-Public Use
  Company Number: US-BAYER-200938606NA

PATIENT
  Age: 26 Year
  Sex: Female
  Weight: 66 kg

DRUGS (8)
  1. VALTREX [Concomitant]
     Indication: PRODUCT USED FOR UNKNOWN INDICATION
  2. BETA-VAL [Concomitant]
     Indication: PSORIASIS
     Dosage: 0.1%
  3. OGESTREL 0.5/50-21 [Concomitant]
     Indication: PRODUCT USED FOR UNKNOWN INDICATION
     Route: 048
  4. YAZ [Suspect]
     Indication: ORAL CONTRACEPTION
     Route: 048
     Dates: start: 20070323, end: 20071231
  5. PRILOSEC [Concomitant]
     Indication: PRODUCT USED FOR UNKNOWN INDICATION
  6. PRENATAL VITAMINS [Concomitant]
  7. YASMIN [Suspect]
     Indication: ORAL CONTRACEPTION
  8. ACYCLOVIR [Concomitant]
     Indication: PRODUCT USED FOR UNKNOWN INDICATION
     Route: 048

REACTIONS (6)
  - DYSPNOEA EXERTIONAL [None]
  - SYNCOPE [None]
  - CHEST DISCOMFORT [None]
  - SINUS TACHYCARDIA [None]
  - PALPITATIONS [None]
  - ARRHYTHMIA [None]
